FAERS Safety Report 20307335 (Version 1)
Quarter: 2022Q1

REPORT INFORMATION
  Report Type: Spontaneous
  Country: US (occurrence: None)
  Receive Date: 20220107
  Receipt Date: 20220107
  Transmission Date: 20220423
  Serious: Yes (Life-Threatening, Hospitalization)
  Sender: FDA-Public Use
  Company Number: US-ROCHE-2993177

PATIENT
  Age: 75 Year
  Sex: Male
  Weight: 130 kg

DRUGS (3)
  1. ACTEMRA [Suspect]
     Active Substance: TOCILIZUMAB
     Indication: COVID-19
     Dosage: 800MG ONCE
     Route: 042
     Dates: start: 20211213
  2. DECADRON [Concomitant]
     Active Substance: DEXAMETHASONE
     Route: 042
     Dates: start: 20211212, end: 20211222
  3. MICAFUNGIN [Concomitant]
     Active Substance: MICAFUNGIN

REACTIONS (6)
  - Influenza [Unknown]
  - Staphylococcal bacteraemia [Unknown]
  - Proteus infection [Unknown]
  - Pneumonia bacterial [Unknown]
  - Candida infection [Unknown]
  - Intentional product use issue [Unknown]

NARRATIVE: CASE EVENT DATE: 20211219
